FAERS Safety Report 9938991 (Version 1)
Quarter: 2014Q1

REPORT INFORMATION
  Report Type: Report from Study
  Country: US (occurrence: US)
  Receive Date: 20140303
  Receipt Date: 20140303
  Transmission Date: 20141002
  Serious: No
  Sender: FDA-Public Use
  Company Number: US-ABBVIE-13P-163-1038308-00

PATIENT
  Age: 66 Year
  Sex: Male

DRUGS (20)
  1. HUMIRA [Suspect]
     Indication: CROHN^S DISEASE
     Route: 058
     Dates: start: 201212
  2. PENTASA [Concomitant]
     Indication: PRODUCT USED FOR UNKNOWN INDICATION
  3. ENTOCORT EC [Concomitant]
     Indication: PRODUCT USED FOR UNKNOWN INDICATION
  4. PRILOSEC [Concomitant]
     Indication: PRODUCT USED FOR UNKNOWN INDICATION
  5. LOPERAMIDE [Concomitant]
     Indication: CROHN^S DISEASE
  6. HYDROCHLOROTHIAZIDE [Concomitant]
     Indication: PRODUCT USED FOR UNKNOWN INDICATION
     Dosage: 12.5 MG DAILY
  7. AMLODIPINE [Concomitant]
     Indication: PRODUCT USED FOR UNKNOWN INDICATION
     Dosage: 10 MG DAILY
  8. LISINOPRIL [Concomitant]
     Indication: PRODUCT USED FOR UNKNOWN INDICATION
  9. METOPROLOL [Concomitant]
     Indication: PRODUCT USED FOR UNKNOWN INDICATION
  10. SPIRONOLACTONE [Concomitant]
     Indication: PRODUCT USED FOR UNKNOWN INDICATION
     Dosage: 25 MG DAILY
  11. KCL [Concomitant]
     Indication: HYPERTENSION
     Dosage: 20 MEQ DAILY
  12. LANTUS [Concomitant]
     Indication: DIABETES MELLITUS
  13. LANTUS [Concomitant]
     Indication: DIABETES MELLITUS
     Dosage: SLIDING SCALE
  14. FLOMAX [Concomitant]
     Indication: PROSTATE CANCER
  15. LYRICA [Concomitant]
     Indication: PRODUCT USED FOR UNKNOWN INDICATION
  16. MELOXICAM [Concomitant]
     Indication: PRODUCT USED FOR UNKNOWN INDICATION
  17. OXYCONTIN [Concomitant]
     Indication: PRODUCT USED FOR UNKNOWN INDICATION
  18. OXYCODONE [Concomitant]
     Indication: PAIN
  19. PREDNISONE [Concomitant]
     Indication: UVEITIS
     Route: 047
  20. VITAMIN E [Concomitant]
     Indication: PRODUCT USED FOR UNKNOWN INDICATION

REACTIONS (3)
  - Cough [Not Recovered/Not Resolved]
  - Drug ineffective [Not Recovered/Not Resolved]
  - Nasopharyngitis [Not Recovered/Not Resolved]
